FAERS Safety Report 24569930 (Version 1)
Quarter: 2024Q4

REPORT INFORMATION
  Report Type: Spontaneous
  Country: US (occurrence: None)
  Receive Date: 20241031
  Receipt Date: 20241031
  Transmission Date: 20250114
  Serious: Yes (Hospitalization)
  Sender: Public
  Company Number: None

PATIENT
  Sex: Male
  Weight: 145.15 kg

DRUGS (2)
  1. WINREVAIR [Suspect]
     Active Substance: SOTATERCEPT-CSRK
     Indication: Pulmonary arterial hypertension
     Dosage: FREQUENCY : EVERY THREE WEEKS;?
     Route: 058
     Dates: start: 202409
  2. REMODULIN [Concomitant]
     Active Substance: TREPROSTINIL

REACTIONS (4)
  - Atrial fibrillation [None]
  - Gastric haemorrhage [None]
  - Product dose omission issue [None]
  - Laboratory test abnormal [None]
